FAERS Safety Report 8228503-2 (Version None)
Quarter: 2012Q1

REPORT INFORMATION
  Report Type: 
  Country: None (occurrence: None)
  Receive Date: 20120322
  Receipt Date: 20110615
  Transmission Date: 20120608
  Serious: Yes (Other)
  Sender: FDA-Public Use
  Company Number: US-BRISTOL-MYERS SQUIBB COMPANY-15768187

PATIENT
  Age: 56 Year
  Sex: Male
  Weight: 89 kg

DRUGS (2)
  1. ERBITUX [Suspect]
     Dosage: 1 DF: 400/M2,INFUSION
     Dates: start: 20110518, end: 20110518
  2. DIPHENHYDRAMINE HCL [Concomitant]
     Route: 042
     Dates: start: 20110518, end: 20110518

REACTIONS (1)
  - RESPIRATION ABNORMAL [None]
